FAERS Safety Report 23637172 (Version 2)
Quarter: 2024Q2

REPORT INFORMATION
  Report Type: Other
  Country: JP (occurrence: JP)
  Receive Date: 20240315
  Receipt Date: 20240528
  Transmission Date: 20240716
  Serious: Yes (Hospitalization)
  Sender: FDA-Public Use
  Company Number: JP-CHUGAI-2022029937

PATIENT
  Age: 36 Year
  Sex: Female
  Weight: 84 kg

DRUGS (10)
  1. ENSPRYNG [Suspect]
     Active Substance: SATRALIZUMAB-MWGE
     Indication: Neuromyelitis optica spectrum disorder
     Dosage: 120 MILLIGRAM, ONCE/2WEEKS
     Route: 058
     Dates: start: 20201118, end: 20201228
  2. ENSPRYNG [Suspect]
     Active Substance: SATRALIZUMAB-MWGE
     Dosage: 120 MILLIGRAM, ONCE/4WEEKS
     Route: 058
     Dates: start: 20210125
  3. PREDONINE [Concomitant]
     Active Substance: PREDNISOLONE
     Indication: Neuromyelitis optica spectrum disorder
     Dosage: 15MG/DAY
     Route: 048
     Dates: start: 20200928, end: 20210110
  4. PREDONINE [Concomitant]
     Active Substance: PREDNISOLONE
     Dosage: 10MG/DAY
     Route: 048
     Dates: start: 20210125, end: 20210321
  5. PREDONINE [Concomitant]
     Active Substance: PREDNISOLONE
     Dosage: 8MG/DAY
     Route: 048
     Dates: start: 20210322, end: 20210418
  6. PREDONINE [Concomitant]
     Active Substance: PREDNISOLONE
     Dosage: 7MG/DAY
     Route: 048
     Dates: start: 20210419
  7. PREDONINE [Concomitant]
     Active Substance: PREDNISOLONE
     Dosage: 4MG/DAY
     Route: 048
     Dates: start: 20210519
  8. PREDONINE [Concomitant]
     Active Substance: PREDNISOLONE
     Dosage: 2MG/DAY
     Route: 048
     Dates: end: 20220822
  9. AZATHIOPRINE [Concomitant]
     Active Substance: AZATHIOPRINE
     Indication: Neuromyelitis optica spectrum disorder
     Dosage: 50MG/DAY
     Dates: start: 20200928, end: 20230403
  10. LOXOPROFEN [Concomitant]
     Active Substance: LOXOPROFEN
     Dosage: 120 MG/DAY

REACTIONS (3)
  - Upper respiratory tract inflammation [Recovered/Resolved]
  - COVID-19 pneumonia [Recovered/Resolved]
  - Blepharospasm [Not Recovered/Not Resolved]

NARRATIVE: CASE EVENT DATE: 20210322
